FAERS Safety Report 4684004-X (Version None)
Quarter: 2005Q2

REPORT INFORMATION
  Report Type: 
  Country: None (occurrence: None)
  Receive Date: 20050602
  Receipt Date: 20050405
  Transmission Date: 20051028
  Serious: No
  Sender: FDA-Public Use
  Company Number: MPS1-10357

PATIENT
  Age: 10 Year
  Sex: Male
  Weight: 43.9 kg

DRUGS (1)
  1. ALDURAZYME [Suspect]
     Indication: MUCOPOLYSACCHARIDOSIS I
     Dates: start: 20040405

REACTIONS (3)
  - ANXIETY [None]
  - HEADACHE [None]
  - PHOTOSENSITIVITY REACTION [None]
